FAERS Safety Report 9687550 (Version 2)
Quarter: 2014Q1

REPORT INFORMATION
  Report Type: Report from Study
  Country: JP (occurrence: JP)
  Receive Date: 20131114
  Receipt Date: 20140327
  Transmission Date: 20141002
  Serious: Yes (Other)
  Sender: FDA-Public Use
  Company Number: JP-JNJFOC-20131104945

PATIENT
  Age: 71 Year
  Sex: Female
  Weight: 44 kg

DRUGS (12)
  1. SIMPONI [Suspect]
     Indication: RHEUMATOID ARTHRITIS
     Route: 058
     Dates: start: 20120322, end: 20120322
  2. SIMPONI [Suspect]
     Indication: RHEUMATOID ARTHRITIS
     Route: 058
     Dates: start: 20120416, end: 20120416
  3. TACROLIMUS HYDRATE [Concomitant]
     Indication: RHEUMATOID ARTHRITIS
     Route: 065
  4. PREDNISOLONE [Concomitant]
     Indication: RHEUMATOID ARTHRITIS
     Route: 065
     Dates: start: 20120416
  5. PREDNISOLONE [Concomitant]
     Indication: RHEUMATOID ARTHRITIS
     Route: 065
     Dates: end: 20120415
  6. NAPA [Concomitant]
     Route: 048
     Dates: start: 20120322
  7. CLINORIL [Concomitant]
     Route: 048
     Dates: start: 20120322
  8. BAKTAR [Concomitant]
     Indication: PROPHYLAXIS
     Route: 048
  9. AMLODIPINE BESILATE [Concomitant]
     Indication: PROPHYLAXIS
     Route: 048
  10. WARFARIN POTASSIUM [Concomitant]
     Indication: PROPHYLAXIS
     Route: 048
  11. THYRADIN S [Concomitant]
     Indication: PROPHYLAXIS
     Route: 048
  12. TERIPARATIDE ACETATE [Concomitant]
     Indication: PROPHYLAXIS
     Route: 058

REACTIONS (1)
  - Hypertensive crisis [Recovered/Resolved]
